FAERS Safety Report 6618608-1 (Version None)
Quarter: 2010Q1

REPORT INFORMATION
  Report Type: 
  Country: None (occurrence: None)
  Receive Date: 20100305
  Receipt Date: 20100305
  Transmission Date: 20100710
  Serious: Yes (Hospitalization)
  Sender: FDA-Public Use
  Company Number: None

PATIENT
  Sex: Female
  Weight: 61.5 kg

DRUGS (1)
  1. LISPRO INSULIN VIA PTS OWN PUMP [Suspect]
     Indication: TYPE 1 DIABETES MELLITUS
     Dosage: 15 UNITS X1 SUBCUT, CHRONIC
     Route: 058

REACTIONS (5)
  - BLOOD GLUCOSE DECREASED [None]
  - FALL [None]
  - INCORRECT DOSE ADMINISTERED [None]
  - LOSS OF CONSCIOUSNESS [None]
  - MEDICATION ERROR [None]
